FAERS Safety Report 8309482-6 (Version None)
Quarter: 2012Q2

REPORT INFORMATION
  Report Type: 
  Country: None (occurrence: None)
  Receive Date: 20120425
  Receipt Date: 20120419
  Transmission Date: 20120825
  Serious: No
  Sender: FDA-Public Use
  Company Number: US-PFIZER INC-2012099977

PATIENT

DRUGS (2)
  1. LYRICA [Suspect]
     Dosage: UNK
  2. PREDNISONE [Concomitant]
     Dosage: UNK

REACTIONS (2)
  - ANXIETY [None]
  - PALPITATIONS [None]
